FAERS Safety Report 4357684-6 (Version None)
Quarter: 2004Q2

REPORT INFORMATION
  Report Type: 
  Country: None (occurrence: None)
  Receive Date: 20040511
  Receipt Date: 20040426
  Transmission Date: 20050107
  Serious: Yes (Hospitalization)
  Sender: FDA-Public Use
  Company Number: 6008582

PATIENT
  Age: 51 Year
  Sex: Male

DRUGS (2)
  1. LEVOTHYROX             (LEVOTHYROXINE SODIUM) [Suspect]
     Indication: GOITRE
     Dosage: 125 MCG (1 IN 1 D), ORAL
     Route: 048
  2. ATORVASTATIN CALCIUM [Suspect]
     Indication: LIPID METABOLISM DISORDER
     Dosage: 10 MG ( 1 IN 1 D), ORAL
     Route: 048
     Dates: start: 20021101, end: 20030102

REACTIONS (7)
  - ANTINUCLEAR ANTIBODY POSITIVE [None]
  - ASTHENIA [None]
  - AUTOIMMUNE HEPATITIS [None]
  - CYTOLYTIC HEPATITIS [None]
  - HEPATIC FIBROSIS [None]
  - HEPATITIS A [None]
  - SMOOTH MUSCLE ANTIBODY POSITIVE [None]
